FAERS Safety Report 10202754 (Version 1)
Quarter: 2014Q2

REPORT INFORMATION
  Report Type: Spontaneous
  Country: AU (occurrence: AU)
  Receive Date: 20140528
  Receipt Date: 20140528
  Transmission Date: 20141212
  Serious: Yes (Disabling)
  Sender: FDA-Public Use
  Company Number: AU-BAYER-2014-067949

PATIENT
  Age: 67 Year
  Sex: Male

DRUGS (1)
  1. KOGENATE FS [Suspect]
     Dosage: UNK
     Dates: start: 201206

REACTIONS (3)
  - Movement disorder [None]
  - Disability [None]
  - Arthropathy [None]
